FAERS Safety Report 9730822 (Version 2)
Quarter: 2013Q4

REPORT INFORMATION
  Report Type: Report from Study
  Country: US (occurrence: US)
  Receive Date: 20131205
  Receipt Date: 20131205
  Transmission Date: 20140711
  Serious: Yes (Hospitalization)
  Sender: FDA-Public Use
  Company Number: US-ROCHE-1242444

PATIENT
  Age: 66 Year
  Sex: Male
  Weight: 99.88 kg

DRUGS (32)
  1. BEVACIZUMAB [Suspect]
     Indication: MENINGIOMA
     Dosage: LAST DOSE PRIOR TO SAE WAS ON 04/NOV/2013 AT A DOSE OF 1000MG
     Route: 042
     Dates: start: 20130625
  2. BEVACIZUMAB [Suspect]
     Route: 042
     Dates: start: 20131119
  3. AMLODIPINE [Concomitant]
     Indication: HYPERTENSION
     Route: 048
     Dates: start: 20130604
  4. VIMPAT [Concomitant]
     Indication: CONVULSION
     Route: 048
     Dates: start: 20100604, end: 20120607
  5. VIMPAT [Concomitant]
     Route: 048
     Dates: start: 20100607
  6. COREG [Concomitant]
     Indication: HYPERTENSION
     Route: 048
     Dates: start: 20130604, end: 20130607
  7. COREG [Concomitant]
     Route: 048
     Dates: start: 20130607
  8. COUMADIN [Concomitant]
     Indication: ATRIAL FIBRILLATION
     Route: 048
     Dates: start: 20130604
  9. COUMADIN [Concomitant]
     Route: 048
     Dates: start: 20130604
  10. COUMADIN [Concomitant]
     Dosage: ONCE A DAY
     Route: 048
  11. ALLOPURINOL [Concomitant]
     Indication: GOUT
     Route: 048
     Dates: start: 20130604
  12. ALLOPURINOL [Concomitant]
     Route: 048
  13. DEXAMETHASONE [Concomitant]
     Indication: BRAIN OEDEMA
     Route: 048
     Dates: start: 20130604, end: 20130610
  14. ENOXAPARIN [Concomitant]
     Indication: IMMOBILE
     Dosage: 40MG/0.4 ML SOLUTION, 0.4 ML INJECTABLE ONCE A DAY X 30 DAYS
     Route: 058
     Dates: start: 20130604, end: 20130607
  15. SERTRALINE [Concomitant]
     Indication: DEPRESSION
     Route: 048
     Dates: start: 20130604
  16. SERTRALINE [Concomitant]
     Dosage: 1.5 TABLETS ONCE A DAY
     Route: 048
  17. LAMOTRIGINE [Concomitant]
     Indication: CONVULSION
     Route: 048
     Dates: start: 20130604, end: 20130607
  18. LAMOTRIGINE [Concomitant]
     Route: 048
     Dates: start: 20130607
  19. LAMOTRIGINE [Concomitant]
     Route: 048
     Dates: start: 20130607
  20. ONFI [Concomitant]
     Indication: CONVULSION
     Route: 048
     Dates: start: 20130604
  21. DOCUSATE SODIUM [Concomitant]
     Route: 048
  22. SENNA [Concomitant]
     Dosage: 2 TABS BEDTIME
     Route: 048
  23. PNEUMOCOCCAL 23-VALENT VACCINE [Concomitant]
     Route: 030
  24. ACETAMINOPHEN [Concomitant]
     Route: 048
  25. ALPRAZOLAM [Concomitant]
     Indication: ANXIETY
     Route: 048
  26. BISACODYL [Concomitant]
     Route: 054
  27. MAALOX PLUS [Concomitant]
     Route: 048
  28. MILK OF MAGNESIA [Concomitant]
     Route: 048
  29. LAMICTAL [Concomitant]
     Indication: CONVULSION
     Dosage: 2.5 TABLETS ONCE A DAY (250 MG IN THE MORNING)
     Route: 048
  30. LAMICTAL [Concomitant]
     Dosage: 3 TABLETS ONCE A DAY (AT BED TIME) (300 MG AT NIGHT)
     Route: 048
  31. JANTOVEN [Concomitant]
     Dosage: 1 TAB ORALLY ONCE A DAY X 30 DAYS, 5 MG FOR 5 DAYS, 2.5 MG FOR 2 DAYS
     Route: 048
  32. ZONISAMIDE [Concomitant]
     Route: 048

REACTIONS (5)
  - Convulsion [Unknown]
  - Cognitive disorder [Unknown]
  - Muscular weakness [Unknown]
  - Mental status changes [Unknown]
  - Hyponatraemia [Recovered/Resolved]
